FAERS Safety Report 7034506-6 (Version None)
Quarter: 2010Q4

REPORT INFORMATION
  Report Type: 
  Country: None (occurrence: None)
  Receive Date: 20101008
  Receipt Date: 20101005
  Transmission Date: 20110411
  Serious: Yes (Other)
  Sender: FDA-Public Use
  Company Number: GXKR2009DE12799

PATIENT
  Sex: Female
  Weight: 85 kg

DRUGS (1)
  1. UNOFEM (NGX) [Suspect]
     Indication: POST COITAL CONTRACEPTION
     Dosage: 1.5 MG, ONCE/SINGLE
     Route: 048
     Dates: start: 20091102

REACTIONS (6)
  - DRUG EXPOSURE DURING PREGNANCY [None]
  - HELLP SYNDROME [None]
  - HYPERTENSION [None]
  - NORMAL NEWBORN [None]
  - PRE-ECLAMPSIA [None]
  - UNINTENDED PREGNANCY [None]
